FAERS Safety Report 6094282-0 (Version None)
Quarter: 2009Q1

REPORT INFORMATION
  Report Type: 
  Country: None (occurrence: None)
  Receive Date: 20090226
  Receipt Date: 20090217
  Transmission Date: 20090719
  Serious: Yes (Other)
  Sender: FDA-Public Use
  Company Number: US-ELI_LILLY_AND_COMPANY-US200902004561

PATIENT
  Age: 65 Year
  Sex: Female

DRUGS (1)
  1. GEMZAR [Suspect]
     Indication: BREAST CANCER
     Dosage: UNK, UNK

REACTIONS (4)
  - CARDIAC FAILURE CONGESTIVE [None]
  - HAEMOLYTIC URAEMIC SYNDROME [None]
  - RENAL FAILURE CHRONIC [None]
  - THROMBOTIC MICROANGIOPATHY [None]
